FAERS Safety Report 16236093 (Version 6)
Quarter: 2020Q1

REPORT INFORMATION
  Report Type: Report from Study
  Country: JP (occurrence: JP)
  Receive Date: 20190425
  Receipt Date: 20200110
  Transmission Date: 20200409
  Serious: Yes (Death, Hospitalization, Other)
  Sender: FDA-Public Use
  Company Number: JP-BRISTOL-MYERS SQUIBB COMPANY-BMS-2019-038610

PATIENT
  Age: 77 Year
  Sex: Male
  Weight: 57.9 kg

DRUGS (2)
  1. IPILIMUMAB [Suspect]
     Active Substance: IPILIMUMAB
     Indication: MALIGNANT MELANOMA
     Dosage: 3 MILLIGRAM/KILOGRAM, Q3WK
     Route: 041
     Dates: start: 20181204, end: 20190315
  2. NIVOLUMAB [Suspect]
     Active Substance: NIVOLUMAB
     Indication: MALIGNANT MELANOMA
     Dosage: 1 DOSAGE FORM - 80 MG/BODY, Q3WK
     Route: 041
     Dates: start: 20181204, end: 20190315

REACTIONS (13)
  - Renal failure [Unknown]
  - Tonsillolith [Unknown]
  - Hepatic enzyme increased [Recovering/Resolving]
  - Acute myocardial infarction [Unknown]
  - Oedema peripheral [Unknown]
  - Inflammation [Unknown]
  - Prostatomegaly [Unknown]
  - Cardiac failure [Fatal]
  - Petit mal epilepsy [Recovered/Resolved]
  - Spinal ligament ossification [Unknown]
  - Diverticulum intestinal [Unknown]
  - Spinal stenosis [Unknown]
  - Prostatic calcification [Unknown]

NARRATIVE: CASE EVENT DATE: 20190111
